FAERS Safety Report 6471311-3 (Version None)
Quarter: 2009Q4

REPORT INFORMATION
  Report Type: 
  Country: None (occurrence: None)
  Receive Date: 20091203
  Receipt Date: 20080518
  Transmission Date: 20100525
  Serious: Yes (Other)
  Sender: FDA-Public Use
  Company Number: US-ELI_LILLY_AND_COMPANY-US200802005384

PATIENT
  Age: 55 Year
  Sex: Male
  Weight: 155 kg

DRUGS (3)
  1. ZYPREXA [Suspect]
     Indication: COGNITIVE DISORDER
     Dosage: UNK, UNK
     Dates: start: 20020101
  2. ZYPREXA [Suspect]
     Dosage: 7.5 MG, UNK
     Dates: end: 20080101
  3. ABILIFY [Concomitant]
     Indication: BIPOLAR DISORDER
     Dates: start: 20080101

REACTIONS (1)
  - WEIGHT INCREASED [None]
